FAERS Safety Report 24008006 (Version 3)
Quarter: 2024Q3

REPORT INFORMATION
  Report Type: Spontaneous
  Country: FR (occurrence: FR)
  Receive Date: 20240625
  Receipt Date: 20240924
  Transmission Date: 20241016
  Serious: Yes (Other)
  Sender: pharmaAND
  Company Number: FR-PHARMAAND GMBH-2024PHR00388

PATIENT
  Sex: Female

DRUGS (2)
  1. PEGASYS [Suspect]
     Active Substance: PEGINTERFERON ALFA-2A
     Indication: Thrombocytopenia
     Dosage: PEGASYS 90 ?G AT THE DOSAGE OF ONE INJECTION PER WEEK
     Route: 058
  2. LOVENOX [Suspect]
     Active Substance: ENOXAPARIN SODIUM
     Indication: Product used for unknown indication

REACTIONS (3)
  - Abortion spontaneous [Unknown]
  - Platelet count abnormal [Recovered/Resolved]
  - Product dose omission issue [Recovered/Resolved]
